FAERS Safety Report 6640937-6 (Version None)
Quarter: 2010Q1

REPORT INFORMATION
  Report Type: 
  Country: None (occurrence: None)
  Receive Date: 20100318
  Receipt Date: 20100303
  Transmission Date: 20100710
  Serious: Yes (Other)
  Sender: FDA-Public Use
  Company Number: US-PURDUE-USA-2009-0041277

PATIENT
  Age: 48 Year
  Sex: Female

DRUGS (2)
  1. DILAUDID-HP [Suspect]
     Indication: PAIN
     Dosage: 1.114 MG, SEE TEXT
     Route: 037
  2. BUPIVACAINE HCL [Concomitant]
     Indication: PAIN
     Dosage: 0.287 MG, UNK
     Route: 037

REACTIONS (4)
  - HYPOAESTHESIA [None]
  - INFUSION SITE MASS [None]
  - PAIN [None]
  - URINARY INCONTINENCE [None]
